FAERS Safety Report 21516729 (Version 2)
Quarter: 2022Q4

REPORT INFORMATION
  Report Type: Report from Study
  Country: US (occurrence: US)
  Receive Date: 20221027
  Receipt Date: 20221125
  Transmission Date: 20230113
  Serious: Yes (Other)
  Sender: FDA-Public Use
  Company Number: US-ACADIA PHARMACEUTICALS INC.-ACA-2022-PIM-003390

PATIENT
  Age: 72 Year
  Sex: Male

DRUGS (42)
  1. NUPLAZID [Suspect]
     Active Substance: PIMAVANSERIN TARTRATE
     Indication: Parkinson^s disease psychosis
     Dosage: 34 MILLIGRAM, QD
     Route: 065
     Dates: start: 20220926, end: 20221021
  2. NUPLAZID [Suspect]
     Active Substance: PIMAVANSERIN TARTRATE
     Indication: Hallucination
  3. NUPLAZID [Suspect]
     Active Substance: PIMAVANSERIN TARTRATE
     Indication: Delusion
  4. CALCIUM CARBONATE\CHOLECALCIFEROL [Concomitant]
     Active Substance: CALCIUM CARBONATE\CHOLECALCIFEROL
     Dosage: CALCIUM 600 MG WITH VITAMIN D3 QD
  5. FLOMAX [Concomitant]
     Active Substance: TAMSULOSIN HYDROCHLORIDE
     Dosage: 0.4 MG Q PM
  6. Mens 50+ MVI [Concomitant]
     Dosage: QD
  7. MIDODRINE [Concomitant]
     Active Substance: MIDODRINE
     Dosage: 2.5 MG TID
  8. MIDODRINE [Concomitant]
     Active Substance: MIDODRINE
     Dosage: 5 MG QAM
  9. MIRALAX [Concomitant]
     Active Substance: POLYETHYLENE GLYCOL 3350
     Indication: Constipation
     Dosage: 17 GRAM PRN
  10. MYRBETRIQ [Concomitant]
     Active Substance: MIRABEGRON
     Dosage: 50 MILLIGRAM, QD ER
  11. PLAVIX [Concomitant]
     Active Substance: CLOPIDOGREL BISULFATE
     Dosage: 75 MILLIGRAM, QD
  12. BIFIDOBACTERIUM ANIMALIS LACTIS [Concomitant]
     Active Substance: BIFIDOBACTERIUM ANIMALIS LACTIS
     Dosage: QAM
  13. PROSCAR [Concomitant]
     Active Substance: FINASTERIDE
     Dosage: 5 MILLIGRAM QHS
  14. OMEPRAZOLE [Concomitant]
     Active Substance: OMEPRAZOLE
     Dosage: 40 MILLIGRAM, BID
  15. RANEXA [Concomitant]
     Active Substance: RANOLAZINE
     Dosage: 1000 MILLIGRAM, BID
  16. SINEMET [Concomitant]
     Active Substance: CARBIDOPA\LEVODOPA
     Dosage: 25/100 TID
  17. SINEMET [Concomitant]
     Active Substance: CARBIDOPA\LEVODOPA
     Dosage: 50/200 QHS
  18. STOOL SOFTENER (DOCUSATE) [Concomitant]
     Active Substance: DOCUSATE
  19. SYNTHROID [Concomitant]
     Active Substance: LEVOTHYROXINE SODIUM
     Dosage: 150 MICROGRAM QAM
  20. TRAMADOL [Concomitant]
     Active Substance: TRAMADOL
     Dosage: PRN
  21. TYLENOL ARTHRITIS PAIN [Concomitant]
     Active Substance: ACETAMINOPHEN
     Dosage: 650 MILLIGRAM, BID
  22. DICLOFENAC [Concomitant]
     Active Substance: DICLOFENAC
     Dosage: 1% UP TO QID PRN
  23. ZETIA [Concomitant]
     Active Substance: EZETIMIBE
     Dosage: 10 MILLIGRAM QHS
  24. LIPITOR [Concomitant]
     Active Substance: ATORVASTATIN CALCIUM
     Dosage: 40 MILLIGRAM QHS
  25. XYZAL [Concomitant]
     Active Substance: LEVOCETIRIZINE DIHYDROCHLORIDE
     Dosage: 5 MILLIGRAM HS
  26. VITAMIN B12 [Concomitant]
     Active Substance: CYANOCOBALAMIN
     Dosage: 1000 MCG ONCE WEEKLY INJECTIONS FOR 6 WEEKS, THEN ONCE MONTHLY
  27. MOMETASONE FUROATE [Concomitant]
     Active Substance: MOMETASONE FUROATE
     Dosage: BID PRN
  28. ALBUTEROL [Concomitant]
     Active Substance: ALBUTEROL
     Dosage: NEBULIZER PRN
  29. ASPIRIN [Concomitant]
     Active Substance: ASPIRIN
     Dosage: 81 MILLIGRAM, QD
  30. ATORVASTATIN CALCIUM [Concomitant]
     Active Substance: ATORVASTATIN CALCIUM
  31. CALCIUM [Concomitant]
     Active Substance: CALCIUM
  32. CARBIDOPA\LEVODOPA [Concomitant]
     Active Substance: CARBIDOPA\LEVODOPA
  33. CYANOCOBALAMIN [Concomitant]
     Active Substance: CYANOCOBALAMIN
  34. DICLOFENAC SODIUM [Concomitant]
     Active Substance: DICLOFENAC SODIUM
  35. FLUTICASONE PROPIONATE [Concomitant]
     Active Substance: FLUTICASONE PROPIONATE
  36. MUCINEX DM [Concomitant]
     Active Substance: DEXTROMETHORPHAN HYDROBROMIDE\GUAIFENESIN
  37. VITAMINS NOS [Concomitant]
     Active Substance: VITAMINS
  38. NYSTATIN [Concomitant]
     Active Substance: NYSTATIN
  39. TOPROL XL [Concomitant]
     Active Substance: METOPROLOL SUCCINATE
  40. TRAMADOL HCL [Concomitant]
     Active Substance: TRAMADOL HYDROCHLORIDE
  41. TYLENOL [Concomitant]
     Active Substance: ACETAMINOPHEN
  42. RANOLAZINE [Concomitant]
     Active Substance: RANOLAZINE

REACTIONS (8)
  - Immobile [Recovered/Resolved]
  - Mental impairment [Recovered/Resolved]
  - Restlessness [Not Recovered/Not Resolved]
  - Arthropathy [Not Recovered/Not Resolved]
  - Depression [Not Recovered/Not Resolved]
  - Peripheral swelling [Not Recovered/Not Resolved]
  - Hallucination [Not Recovered/Not Resolved]
  - Hallucination, visual [Not Recovered/Not Resolved]

NARRATIVE: CASE EVENT DATE: 20220930
